FAERS Safety Report 12429685 (Version 4)
Quarter: 2021Q1

REPORT INFORMATION
  Report Type: Report from Study
  Country: US (occurrence: US)
  Receive Date: 20160602
  Receipt Date: 20210113
  Transmission Date: 20210419
  Serious: Yes (Hospitalization)
  Sender: FDA-Public Use
  Company Number: US-CELGENEUS-USA-2016056859

PATIENT
  Age: 63 Year
  Sex: Male
  Weight: 76.27 kg

DRUGS (7)
  1. BORTEZOMIB. [Suspect]
     Active Substance: BORTEZOMIB
     Indication: PLASMA CELL MYELOMA
     Dosage: 1.3 MILLIGRAM
     Route: 041
     Dates: start: 20100429, end: 20100610
  2. BORTEZOMIB. [Suspect]
     Active Substance: BORTEZOMIB
     Dosage: 2.9 MILLIGRAM
     Route: 041
     Dates: start: 20100923, end: 20101123
  3. CYCLOPHOSPHAMIDE. [Suspect]
     Active Substance: CYCLOPHOSPHAMIDE
     Indication: PLASMA CELL MYELOMA
     Dosage: 585 MILLIGRAM
     Route: 041
     Dates: start: 20100923, end: 20101123
  4. DECADRON [Suspect]
     Active Substance: DEXAMETHASONE
     Indication: PLASMA CELL MYELOMA
     Dosage: 40 MILLIGRAM
     Route: 048
     Dates: start: 20100614, end: 20101123
  5. BORTEZOMIB. [Suspect]
     Active Substance: BORTEZOMIB
     Route: 041
     Dates: start: 20100614, end: 20100624
  6. THALOMID [Suspect]
     Active Substance: THALIDOMIDE
     Indication: PLASMA CELL MYELOMA
     Dosage: 100 MILLIGRAM
     Route: 048
     Dates: start: 20100614, end: 20100701
  7. BORTEZOMIB. [Suspect]
     Active Substance: BORTEZOMIB
     Route: 041
     Dates: start: 20100701

REACTIONS (4)
  - Gastrointestinal haemorrhage [Recovered/Resolved]
  - Dehydration [Recovered/Resolved]
  - Thrombocytopenia [Recovered/Resolved]
  - Anaemia [Recovered/Resolved]

NARRATIVE: CASE EVENT DATE: 20101103
